FAERS Safety Report 4360891-X (Version None)
Quarter: 2004Q2

REPORT INFORMATION
  Report Type: 
  Country: None (occurrence: None)
  Receive Date: 20040517
  Receipt Date: 20040429
  Transmission Date: 20050107
  Serious: No
  Sender: FDA-Public Use
  Company Number: 2004UW09651

PATIENT
  Sex: Female

DRUGS (1)
  1. LOSEC [Suspect]
     Indication: GASTROOESOPHAGEAL REFLUX DISEASE

REACTIONS (2)
  - CARDIAC DISORDER [None]
  - GASTRIC ULCER HAEMORRHAGE [None]
